FAERS Safety Report 7165622 (Version 1)
Quarter: 2020Q3

REPORT INFORMATION
  Report Type: Report from Study
  Country: CA (occurrence: CA)
  Receive Date: 20091103
  Receipt Date: 20091103
  Transmission Date: 20201105
  Serious: Yes (Hospitalization)
  Sender: FDA-Public Use
  Company Number: CA-JNJFOC-20091003055

PATIENT
  Age: 60 Year
  Sex: Male
  Weight: 85 kg

DRUGS (20)
  1. CNTO 1275 [Suspect]
     Active Substance: USTEKINUMAB
     Indication: PSORIASIS
     Route: 058
  2. CNTO 1275 [Suspect]
     Active Substance: USTEKINUMAB
     Indication: PSORIASIS
     Route: 058
  3. PLACEBO [Suspect]
     Active Substance: UNSPECIFIED INGREDIENT
     Indication: PSORIASIS
  4. CNTO 1275 [Suspect]
     Active Substance: USTEKINUMAB
     Indication: PSORIASIS
     Route: 058
  5. CNTO 1275 [Suspect]
     Active Substance: USTEKINUMAB
     Indication: PSORIASIS
     Route: 058
  6. CNTO 1275 [Suspect]
     Active Substance: USTEKINUMAB
     Indication: PSORIASIS
     Route: 058
  7. CNTO 1275 [Suspect]
     Active Substance: USTEKINUMAB
     Indication: PSORIASIS
     Route: 058
  8. CNTO 1275 [Suspect]
     Active Substance: USTEKINUMAB
     Indication: PSORIASIS
     Route: 058
  9. CNTO 1275 [Suspect]
     Active Substance: USTEKINUMAB
     Indication: PSORIASIS
     Route: 058
  10. ACTONEL [Concomitant]
     Active Substance: RISEDRONATE SODIUM
     Route: 048
  11. CNTO 1275 [Suspect]
     Active Substance: USTEKINUMAB
     Indication: PSORIASIS
     Route: 058
  12. CNTO 1275 [Suspect]
     Active Substance: USTEKINUMAB
     Indication: PSORIASIS
     Route: 058
  13. CNTO 1275 [Suspect]
     Active Substance: USTEKINUMAB
     Indication: PSORIASIS
     Route: 058
  14. CNTO 1275 [Suspect]
     Active Substance: USTEKINUMAB
     Indication: PSORIASIS
     Route: 058
  15. CNTO 1275 [Suspect]
     Active Substance: USTEKINUMAB
     Indication: PSORIASIS
     Route: 058
  16. CNTO 1275 [Suspect]
     Active Substance: USTEKINUMAB
     Indication: PSORIASIS
     Route: 058
  17. PLACEBO [Suspect]
     Active Substance: UNSPECIFIED INGREDIENT
     Indication: PSORIASIS
  18. CLONAZEPAM. [Concomitant]
     Active Substance: CLONAZEPAM
     Route: 048
  19. CALCIUM\COPPER\MAGNESIUM\MANGANESE\ZINC [Concomitant]
     Route: 048
  20. CNTO 1275 [Suspect]
     Active Substance: USTEKINUMAB
     Indication: PSORIASIS
     Route: 058

REACTIONS (1)
  - Myocardial infarction [Not Recovered/Not Resolved]

NARRATIVE: CASE EVENT DATE: 20090929
